FAERS Safety Report 17355970 (Version 1)
Quarter: 2020Q1

REPORT INFORMATION
  Report Type: Spontaneous
  Country: US (occurrence: US)
  Receive Date: 20200131
  Receipt Date: 20200131
  Transmission Date: 20200409
  Serious: No
  Sender: FDA-Public Use
  Company Number: US-009507513-2001USA008143

PATIENT
  Age: 76 Year
  Sex: Male

DRUGS (2)
  1. CYANOCOBALAMIN. [Concomitant]
     Active Substance: CYANOCOBALAMIN
  2. KEYTRUDA [Suspect]
     Active Substance: PEMBROLIZUMAB
     Indication: SQUAMOUS CELL CARCINOMA OF LUNG
     Dosage: 200 MG EVERY 21 DAYS
     Route: 042
     Dates: start: 20190418, end: 20200121

REACTIONS (1)
  - General physical health deterioration [Not Recovered/Not Resolved]
